FAERS Safety Report 5637782-7 (Version None)
Quarter: 2008Q1

REPORT INFORMATION
  Report Type: 
  Country: None (occurrence: None)
  Receive Date: 20080219
  Receipt Date: 20080204
  Transmission Date: 20080703
  Serious: Yes (Hospitalization)
  Sender: FDA-Public Use
  Company Number: 2008S1001889

PATIENT
  Age: 23 Year
  Sex: Male

DRUGS (4)
  1. SERTRALINE HCL [Suspect]
     Indication: BORDERLINE PERSONALITY DISORDER
     Dosage: ORAL
     Route: 048
     Dates: start: 20071101, end: 20080119
  2. SERTRALINE HCL [Suspect]
     Indication: DEPRESSION
     Dosage: ORAL
     Route: 048
     Dates: start: 20071101, end: 20080119
  3. BUPROPION HCL [Suspect]
     Indication: MOOD SWINGS
     Dosage: ORAL
     Route: 048
     Dates: start: 20071201, end: 20080119
  4. ZOLPIDEM [Suspect]
     Indication: INSOMNIA
     Dosage: ORAL
     Route: 048
     Dates: start: 20080117, end: 20080119

REACTIONS (11)
  - ALCOHOL USE [None]
  - AMNESIA [None]
  - ANOREXIA [None]
  - INSOMNIA [None]
  - LOSS OF CONSCIOUSNESS [None]
  - MANIA [None]
  - MOOD SWINGS [None]
  - OVERDOSE [None]
  - SELF-MEDICATION [None]
  - SUICIDE ATTEMPT [None]
  - WEIGHT DECREASED [None]
